FAERS Safety Report 22540383 (Version 1)
Quarter: 2023Q2

REPORT INFORMATION
  Report Type: Spontaneous
  Country: US (occurrence: None)
  Receive Date: 20230608
  Receipt Date: 20230608
  Transmission Date: 20230722
  Serious: Yes (Hospitalization)
  Sender: FDA-Public Use
  Company Number: None

PATIENT
  Age: 45 Year
  Sex: Male
  Weight: 81 kg

DRUGS (2)
  1. DEXAMETHASONE [Suspect]
     Active Substance: DEXAMETHASONE
     Dates: start: 20230522
  2. OMNIPAQUE [Suspect]
     Active Substance: IOHEXOL
     Dates: start: 20230522

REACTIONS (2)
  - Endocarditis [None]
  - Post procedural complication [None]

NARRATIVE: CASE EVENT DATE: 20230522
